FAERS Safety Report 7581008-4 (Version None)
Quarter: 2011Q2

REPORT INFORMATION
  Report Type: 
  Country: None (occurrence: None)
  Receive Date: 20110622
  Receipt Date: 20110608
  Transmission Date: 20111010
  Serious: Yes (Other)
  Sender: FDA-Public Use
  Company Number: PHHY2011TR49749

PATIENT
  Age: 75 Year
  Sex: Male

DRUGS (1)
  1. VISUDYNE [Suspect]
     Indication: CONJUNCTIVAL DISORDER

REACTIONS (4)
  - CONJUNCTIVAL HAEMORRHAGE [None]
  - TRANSPLANT [None]
  - CONJUNCTIVAL DISORDER [None]
  - POST PROCEDURAL DISCHARGE [None]
